FAERS Safety Report 21981685 (Version 3)
Quarter: 2023Q2

REPORT INFORMATION
  Report Type: Spontaneous
  Country: US (occurrence: US)
  Receive Date: 20230212
  Receipt Date: 20230523
  Transmission Date: 20230722
  Serious: No
  Sender: FDA-Public Use
  Company Number: US-002147023-NVSC2023US025446

PATIENT
  Sex: Male

DRUGS (1)
  1. ALBUTEROL SULFATE [Suspect]
     Active Substance: ALBUTEROL SULFATE
     Indication: Dyspnoea
     Dosage: 2 DOSAGE FORM, Q4H (2 INHALATIONS EVERY 4 HOURS)
     Route: 045

REACTIONS (2)
  - Incorrect dose administered by device [Not Recovered/Not Resolved]
  - Drug dose omission by device [Not Recovered/Not Resolved]
